FAERS Safety Report 6060151-5 (Version None)
Quarter: 2009Q1

REPORT INFORMATION
  Report Type: 
  Country: None (occurrence: None)
  Receive Date: 20090127
  Receipt Date: 20090113
  Transmission Date: 20090719
  Serious: Yes (Other)
  Sender: FDA-Public Use
  Company Number: 6048451

PATIENT
  Age: 62 Year
  Sex: Female

DRUGS (1)
  1. MAINTATE (BISOPROLOL FUMARATE) [Suspect]
     Indication: DRUG USE FOR UNKNOWN INDICATION
     Dosage: DAILY DOSE
     Route: 048
     Dates: start: 20070601, end: 20070801

REACTIONS (1)
  - LIVER DISORDER [None]
